FAERS Safety Report 12457686 (Version 2)
Quarter: 2016Q3

REPORT INFORMATION
  Report Type: Spontaneous
  Country: US (occurrence: US)
  Receive Date: 20160610
  Receipt Date: 20160901
  Transmission Date: 20161109
  Serious: Yes (Hospitalization)
  Sender: FDA-Public Use
  Company Number: US-RELYPSA-RLY2016000912

PATIENT
  Age: 59 Year
  Sex: Female

DRUGS (27)
  1. LASIX [Concomitant]
     Active Substance: FUROSEMIDE
  2. MORPHINE SULFATE. [Concomitant]
     Active Substance: MORPHINE SULFATE
  3. OMEPRAZOLE. [Concomitant]
     Active Substance: OMEPRAZOLE
  4. PHENYTOIN SODIUM. [Concomitant]
     Active Substance: PHENYTOIN SODIUM
  5. SERTRALINE HCL [Concomitant]
     Active Substance: SERTRALINE HYDROCHLORIDE
  6. SINGULAIR [Concomitant]
     Active Substance: MONTELUKAST SODIUM
  7. SODIUM BICARBONATE. [Concomitant]
     Active Substance: SODIUM BICARBONATE
  8. ALLOPURINOL. [Concomitant]
     Active Substance: ALLOPURINOL
  9. METOPROLOL TARTRATE. [Concomitant]
     Active Substance: METOPROLOL TARTRATE
  10. HUMALOG [Concomitant]
     Active Substance: INSULIN LISPRO
  11. IPRATROPIUM BROMIDE. [Concomitant]
     Active Substance: IPRATROPIUM BROMIDE
  12. KEPPRA [Concomitant]
     Active Substance: LEVETIRACETAM
  13. LANTUS [Concomitant]
     Active Substance: INSULIN GLARGINE
  14. PHENYTEK [Concomitant]
     Active Substance: PHENYTOIN SODIUM
  15. VIMPAT [Concomitant]
     Active Substance: LACOSAMIDE
  16. AMLODIPINE [Concomitant]
     Active Substance: AMLODIPINE BESYLATE
  17. DILANTIN [Concomitant]
     Active Substance: PHENYTOIN
  18. HYDROCODONE BITARTRATE AND ACETAMINOPHEN [Concomitant]
     Active Substance: ACETAMINOPHEN\HYDROCODONE BITARTRATE
  19. PROMETHAZINE HCL [Concomitant]
     Active Substance: PROMETHAZINE HYDROCHLORIDE
  20. ROZEREM [Concomitant]
     Active Substance: RAMELTEON
  21. VELTASSA [Suspect]
     Active Substance: PATIROMER
     Indication: HYPERKALAEMIA
     Dosage: 8.4 G, QD
     Route: 048
     Dates: start: 20160506
  22. ASPIRIN                            /00002701/ [Concomitant]
     Active Substance: ASPIRIN
  23. NITRO-DUR [Concomitant]
     Active Substance: NITROGLYCERIN
  24. FOLIC ACID. [Concomitant]
     Active Substance: FOLIC ACID
  25. NITROSTAT [Concomitant]
     Active Substance: NITROGLYCERIN
  26. NYSTATIN. [Concomitant]
     Active Substance: NYSTATIN
  27. PLAVIX [Concomitant]
     Active Substance: CLOPIDOGREL BISULFATE

REACTIONS (1)
  - Cardiac failure congestive [Unknown]

NARRATIVE: CASE EVENT DATE: 20160528
